FAERS Safety Report 7048569-5 (Version None)
Quarter: 2010Q4

REPORT INFORMATION
  Report Type: 
  Country: None (occurrence: None)
  Receive Date: 20101008
  Receipt Date: 20100924
  Transmission Date: 20110411
  Serious: Yes (Hospitalization)
  Sender: FDA-Public Use
  Company Number: 019392

PATIENT
  Sex: Female

DRUGS (1)
  1. CIMZIA [Suspect]
     Dosage: (SUBCUTANEOUS)
     Route: 058
     Dates: start: 20090101

REACTIONS (3)
  - ABDOMINAL ADHESIONS [None]
  - CONSTIPATION [None]
  - SWELLING [None]
